FAERS Safety Report 9153706 (Version 1)
Quarter: 2013Q1

REPORT INFORMATION
  Report Type: Report from Study
  Country: CA (occurrence: CA)
  Receive Date: 20130311
  Receipt Date: 20130311
  Transmission Date: 20140127
  Serious: Yes (Hospitalization)
  Sender: FDA-Public Use
  Company Number: CA-JNJFOC-20130217306

PATIENT
  Age: 13 Year
  Sex: Male
  Weight: 45 kg

DRUGS (1)
  1. REMICADE [Suspect]
     Indication: CROHN^S DISEASE
     Dosage: START DATE: 7-DEC-2013 [SIC]
     Route: 042

REACTIONS (2)
  - Pharyngitis streptococcal [Not Recovered/Not Resolved]
  - Crohn^s disease [Not Recovered/Not Resolved]
